FAERS Safety Report 6704483-3 (Version None)
Quarter: 2010Q2

REPORT INFORMATION
  Report Type: 
  Country: None (occurrence: None)
  Receive Date: 20100430
  Receipt Date: 20100326
  Transmission Date: 20101027
  Serious: Yes (Hospitalization)
  Sender: FDA-Public Use
  Company Number: US-ALLERGAN-1005362US

PATIENT
  Age: 59 Year
  Sex: Male

DRUGS (5)
  1. BLINDED AZELAIC ACID UNK [Suspect]
     Indication: ROSACEA
     Dosage: 0.5 G, BID
     Route: 061
     Dates: start: 20100201, end: 20100323
  2. BLINDED PLACEBO [Suspect]
     Indication: ROSACEA
     Dosage: 0.5 G, BID
     Route: 061
     Dates: start: 20100201, end: 20100323
  3. METFORMIN [Concomitant]
     Indication: TYPE 2 DIABETES MELLITUS
     Dosage: 850 MG, UNK
     Dates: start: 20040101, end: 20090901
  4. PIOGLITAZONE [Concomitant]
     Indication: TYPE 2 DIABETES MELLITUS
     Dosage: 15 MG, UNK
     Dates: start: 20060101, end: 20090901
  5. CIPRO [Concomitant]
     Indication: EXCORIATION
     Dosage: UNK
     Route: 048
     Dates: start: 20100303, end: 20100323

REACTIONS (3)
  - CELLULITIS [None]
  - DIABETIC NEUROPATHY [None]
  - TOE AMPUTATION [None]
